FAERS Safety Report 14671310 (Version 1)
Quarter: 2018Q1

REPORT INFORMATION
  Report Type: Spontaneous
  Country: FR (occurrence: FR)
  Receive Date: 20180323
  Receipt Date: 20180323
  Transmission Date: 20180509
  Serious: Yes (Other)
  Sender: FDA-Public Use
  Company Number: FR-MERCK KGAA-2044346

PATIENT
  Age: 53 Year
  Sex: Female

DRUGS (1)
  1. NOVOTHYROX [Suspect]
     Active Substance: LEVOTHYROXINE SODIUM
     Indication: POST PROCEDURAL HYPOTHYROIDISM
     Dates: start: 2017, end: 2017

REACTIONS (31)
  - Arthralgia [Recovering/Resolving]
  - Crying [None]
  - Headache [None]
  - Muscle spasms [Recovering/Resolving]
  - Dizziness [None]
  - Asocial behaviour [None]
  - Screaming [None]
  - Hallucination [None]
  - Tinnitus [None]
  - Dysstasia [None]
  - Stress [None]
  - Migraine [None]
  - Amnesia [None]
  - Decreased appetite [None]
  - Insomnia [None]
  - Blindness [Not Recovered/Not Resolved]
  - Dysaesthesia [None]
  - Abnormal behaviour [None]
  - Disorientation [None]
  - Disturbance in attention [None]
  - Visual impairment [Not Recovered/Not Resolved]
  - Paraesthesia [None]
  - Vomiting [None]
  - Myalgia [Recovering/Resolving]
  - Confusional state [None]
  - Abdominal pain upper [None]
  - Somnolence [None]
  - Back pain [Recovering/Resolving]
  - Hypoaesthesia [Not Recovered/Not Resolved]
  - Irritability [None]
  - Loss of personal independence in daily activities [None]

NARRATIVE: CASE EVENT DATE: 2017
